FAERS Safety Report 7167438-3 (Version None)
Quarter: 2010Q4

REPORT INFORMATION
  Report Type: 
  Country: None (occurrence: None)
  Receive Date: 20101216
  Receipt Date: 20091216
  Transmission Date: 20110411
  Serious: No
  Sender: FDA-Public Use
  Company Number: A0835377A

PATIENT
  Age: 48 Year
  Sex: Male

DRUGS (3)
  1. NICOTINE POLACRILEX [Suspect]
  2. BUPROPION [Concomitant]
     Indication: DEPRESSION
  3. NICOTINE [Concomitant]
     Route: 062

REACTIONS (5)
  - AGITATION [None]
  - DRUG ADMINISTRATION ERROR [None]
  - EMOTIONAL DISORDER [None]
  - NERVOUSNESS [None]
  - RESTLESSNESS [None]
